FAERS Safety Report 11135917 (Version 1)
Quarter: 2015Q2

REPORT INFORMATION
  Report Type: Spontaneous
  Country: US (occurrence: US)
  Receive Date: 20150526
  Receipt Date: 20150526
  Transmission Date: 20150821
  Serious: No
  Sender: FDA-Public Use
  Company Number: US-MALLINCKRODT-T201502034

PATIENT
  Age: 55 Year
  Sex: Female

DRUGS (1)
  1. H.P. ACTHAR [Suspect]
     Active Substance: CORTICOTROPIN
     Indication: PROTEINURIA
     Dosage: 80 UNITS, 2 TIMES WKLY
     Route: 058
     Dates: start: 20150203

REACTIONS (2)
  - Peripheral swelling [Unknown]
  - Feeling hot [Unknown]

NARRATIVE: CASE EVENT DATE: 201502
